FAERS Safety Report 21719776 (Version 5)
Quarter: 2024Q1

REPORT INFORMATION
  Report Type: Report from Study
  Country: US (occurrence: US)
  Receive Date: 20221213
  Receipt Date: 20240225
  Transmission Date: 20240409
  Serious: Yes (Hospitalization, Other)
  Sender: FDA-Public Use
  Company Number: US-ACADIA PHARMACEUTICALS INC.-ACA-2022-PIM-004034

PATIENT
  Sex: Female

DRUGS (12)
  1. NUPLAZID [Suspect]
     Active Substance: PIMAVANSERIN TARTRATE
     Indication: Parkinson^s disease psychosis
     Dosage: 34 MILLIGRAM, QD
     Route: 048
     Dates: start: 20221115
  2. NUPLAZID [Suspect]
     Active Substance: PIMAVANSERIN TARTRATE
     Indication: Parkinson^s disease
  3. CARBIDOPA [Concomitant]
     Active Substance: CARBIDOPA
  4. MELOXICAM [Concomitant]
     Active Substance: MELOXICAM
  5. NEUPRO [Concomitant]
     Active Substance: ROTIGOTINE
  6. PROPRANOLOL [Concomitant]
     Active Substance: PROPRANOLOL HYDROCHLORIDE
  7. METRONIDAZOLE [Concomitant]
     Active Substance: METRONIDAZOLE
  8. CYANOCOBALAMIN [Concomitant]
     Active Substance: CYANOCOBALAMIN
  9. NYSTATIN [Concomitant]
     Active Substance: NYSTATIN
  10. LACTULOSE [Concomitant]
     Active Substance: LACTULOSE
  11. CIPROFLOXACIN [Concomitant]
     Active Substance: CIPROFLOXACIN
  12. CARBIDOPA\ENTACAPONE\LEVODOPA [Concomitant]
     Active Substance: CARBIDOPA\ENTACAPONE\LEVODOPA

REACTIONS (13)
  - Paraparesis [Unknown]
  - COVID-19 [Unknown]
  - Fall [Unknown]
  - Hypophagia [Unknown]
  - Adverse drug reaction [Unknown]
  - Delusion [Not Recovered/Not Resolved]
  - Infection [Unknown]
  - Wrong technique in product usage process [Not Recovered/Not Resolved]
  - Inappropriate schedule of product administration [Not Recovered/Not Resolved]
  - Hallucination [Not Recovered/Not Resolved]
  - Gait disturbance [Unknown]
  - Constipation [Unknown]
  - Fall [Unknown]
